FAERS Safety Report 12894884 (Version 1)
Quarter: 2016Q4

REPORT INFORMATION
  Report Type: Spontaneous
  Country: GB (occurrence: GB)
  Receive Date: 20161028
  Receipt Date: 20161028
  Transmission Date: 20170207
  Serious: Yes (Hospitalization, Other)
  Sender: FDA-Public Use
  Company Number: GB-009507513-1610GBR012355

PATIENT
  Age: 83 Year
  Sex: Male
  Weight: 100.2 kg

DRUGS (20)
  1. SIMVASTATIN. [Suspect]
     Active Substance: SIMVASTATIN
     Dosage: 20 MG, UNK, AT NIGHT
     Route: 048
  2. CONOTRANE (BENZALKONIUM CHLORIDE (+) DIMETHICONE) [Concomitant]
     Dosage: APPLY TO AFFECTED AREA REGULARLY
     Route: 061
  3. INSULATARD (INSULIN HUMAN, ISOPHANE) [Concomitant]
     Active Substance: INSULIN HUMAN
     Dosage: FORMULATION: SUSPENSION FOR INJECTION IN CARTRIDGE,69 UNITS AT 11AM AND 15 UNITS AT 9PM.100UNITS/ML
     Route: 058
  4. AMOXICILLIN. [Suspect]
     Active Substance: AMOXICILLIN
     Indication: LOWER RESPIRATORY TRACT INFECTION
     Route: 048
     Dates: start: 20160920, end: 20160922
  5. ALFACALCIDOL [Concomitant]
     Active Substance: ALFACALCIDOL
     Dosage: 500 NG, QD
     Route: 048
  6. LIGNOSPAN [Concomitant]
     Indication: LOCAL ANAESTHESIA
  7. ACETAMINOPHEN. [Concomitant]
     Active Substance: ACETAMINOPHEN
     Dosage: 500MG-1G EVERY 4-6 HOURS UP TO FOUR TIMES A DAY
     Route: 048
  8. PROPARACAINE [Concomitant]
     Active Substance: PROPARACAINE
     Indication: LOCAL ANAESTHESIA
     Dosage: 0.5 %, UNK
     Route: 047
  9. FUROSEMIDE. [Suspect]
     Active Substance: FUROSEMIDE
     Dosage: IN THE MORNING
     Route: 048
     Dates: start: 20160724
  10. ENALAPRIL MALEATE. [Concomitant]
     Active Substance: ENALAPRIL MALEATE
     Dosage: 20 MG, BID
     Route: 048
  11. ALLOPURINOL. [Concomitant]
     Active Substance: ALLOPURINOL
     Dosage: 50 MG, QD
     Route: 048
  12. PREGABALIN. [Concomitant]
     Active Substance: PREGABALIN
     Dosage: 75 MG, QD
     Route: 048
  13. URSODIOL. [Concomitant]
     Active Substance: URSODIOL
     Dosage: 250 MG, QD
     Route: 048
  14. XYLOCAINE [Concomitant]
     Active Substance: LIDOCAINE HYDROCHLORIDE
     Indication: LOCAL ANAESTHESIA
  15. LERCANIDIPINE [Concomitant]
     Active Substance: LERCANIDIPINE
     Dosage: 10 MG, QD
     Route: 048
  16. NICORANDIL [Concomitant]
     Active Substance: NICORANDIL
     Dosage: 10 MG, QD
     Route: 048
  17. DOXAZOSIN [Concomitant]
     Active Substance: DOXAZOSIN\DOXAZOSIN MESYLATE
     Dosage: 3 MG, QD, AT NIGHT
     Route: 048
  18. ASPIRIN. [Suspect]
     Active Substance: ASPIRIN
     Route: 048
     Dates: end: 20160922
  19. SODIUM BICARBONATE. [Concomitant]
     Active Substance: SODIUM BICARBONATE
     Dosage: 500 MG, QD
     Route: 048
  20. DICLOFENAC [Concomitant]
     Active Substance: DICLOFENAC
     Dosage: APPLY 3-4 TIMES DAILY
     Route: 061

REACTIONS (4)
  - Immune thrombocytopenic purpura [Recovering/Resolving]
  - Anaemia [Unknown]
  - Procedural haemorrhage [Recovered/Resolved]
  - Contusion [Unknown]

NARRATIVE: CASE EVENT DATE: 20160922
